FAERS Safety Report 5522625-2 (Version None)
Quarter: 2007Q4

REPORT INFORMATION
  Report Type: 
  Country: None (occurrence: None)
  Receive Date: 20071120
  Receipt Date: 20071112
  Transmission Date: 20080405
  Serious: Yes (Other)
  Sender: FDA-Public Use
  Company Number: JP-PFIZER INC-2007095538

PATIENT
  Age: 68 Year
  Sex: Female

DRUGS (2)
  1. HALCION [Suspect]
     Route: 048
  2. GLYSENNID [Concomitant]
     Route: 048

REACTIONS (2)
  - PARKINSONISM [None]
  - WEIGHT DECREASED [None]
